FAERS Safety Report 8765163 (Version 2)
Quarter: 2012Q4

REPORT INFORMATION
  Report Type: 
  Country: JP (occurrence: JP)
  Receive Date: 20120903
  Receipt Date: 20120911
  Transmission Date: 20130627
  Serious: Yes (Death, Hospitalization)
  Sender: FDA-Public Use
  Company Number: JP-SHIRE-ALL1-2012-04094

PATIENT
  Age: 60 Year
  Sex: Male

DRUGS (18)
  1. BAYASPIRIN [Suspect]
     Indication: ANGINA PECTORIS
     Dosage: 100 mg, Unknown
     Route: 048
     Dates: start: 20080702
  2. REGPARA [Suspect]
     Indication: HYPERPARATHYROIDISM SECONDARY
     Dosage: 25 mg, Unknown
     Route: 048
     Dates: start: 20081110, end: 20110123
  3. REGPARA [Suspect]
     Dosage: 37.5 mg, Unknown
     Route: 048
     Dates: start: 20110124, end: 20111221
  4. PHOSBLOCK [Concomitant]
     Indication: HYPERPHOSPHATAEMIA
     Dosage: 2000 mg, Unknown
     Route: 048
     Dates: start: 20090130
  5. PHOSBLOCK [Concomitant]
     Dosage: 1000 mg, Unknown
     Route: 048
     Dates: start: 201109
  6. PHOSBLOCK [Concomitant]
     Dosage: UNK, Unknown
     Route: 048
     Dates: end: 20111221
  7. OXAROL [Concomitant]
     Indication: PRODUCT USED FOR UNKNOWN INDICATION
     Dosage: 22.5 ?g, 1x/week
     Route: 042
     Dates: start: 20090107, end: 20091013
  8. OXAROL [Concomitant]
     Dosage: 45 ?g, 1x/week
     Route: 042
     Dates: start: 20091014, end: 20100119
  9. OXAROL [Concomitant]
     Dosage: 10 ?g, 1x/week
     Route: 042
     Dates: start: 20100120
  10. OXAROL [Concomitant]
     Dosage: 2.5 ?g, 1x/week
     Route: 042
     Dates: start: 20110126, end: 20111221
  11. ADALAT CR [Concomitant]
     Indication: HYPERTENSION
     Dosage: 40.0 mg, Unknown
     Route: 048
     Dates: start: 20050611
  12. NITORBIN [Concomitant]
     Indication: ANGINA PECTORIS
     Dosage: 10.0 mg, Unknown
     Route: 048
     Dates: start: 20070702
  13. PURSENNID /00142207/ [Concomitant]
     Indication: CONSTIPATION
     Dosage: 288.0 mg, 1x/week(on day of dialysis)
     Route: 048
     Dates: start: 20070213
  14. GASTER [Concomitant]
     Indication: GASTRITIS
     Dosage: 10 mg, Unknown
     Route: 048
     Dates: start: 20080702
  15. CRESTOR [Concomitant]
     Indication: PRODUCT USED FOR UNKNOWN INDICATION
     Dosage: 2.5 mg, Unknown
     Route: 048
     Dates: start: 20080908
  16. ESPO [Concomitant]
     Indication: PRODUCT USED FOR UNKNOWN INDICATION
     Dosage: 1500 IU, Unknown
     Route: 042
     Dates: start: 20070702
  17. NESP [Concomitant]
     Indication: PRODUCT USED FOR UNKNOWN INDICATION
     Dosage: 30 ?g, Unknown
     Route: 042
     Dates: start: 20071101
  18. LANTHANUM CARBONATE [Concomitant]
     Dosage: 10 ?g, Unknown
     Route: 042
     Dates: start: 20100106

REACTIONS (1)
  - Subarachnoid haemorrhage [Fatal]
